FAERS Safety Report 9637665 (Version 3)
Quarter: 2013Q4

REPORT INFORMATION
  Report Type: Spontaneous
  Country: ES (occurrence: ES)
  Receive Date: 20131022
  Receipt Date: 20131025
  Transmission Date: 20140711
  Serious: Yes (Other)
  Sender: FDA-Public Use
  Company Number: ES-PFIZER INC-2013288397

PATIENT
  Age: 48 Year
  Sex: Female
  Weight: 56 kg

DRUGS (8)
  1. PRISTIQ [Suspect]
     Dosage: 50 MG, DAILY
     Route: 048
     Dates: start: 201309, end: 20131004
  2. VENLAFAXINE HYDROCHLORIDE [Interacting]
     Indication: DYSTHYMIC DISORDER
     Dosage: 150 MG, ONCE A DAY
     Route: 048
     Dates: start: 20130710, end: 2013
  3. VENLAFAXINA [Interacting]
     Indication: DYSTHYMIC DISORDER
     Dosage: 150 MG, 1X/DAY
     Route: 048
     Dates: start: 20130827, end: 2013
  4. VENLAFAXINA [Interacting]
     Indication: DYSTHYMIC DISORDER
     Dosage: 150 MG, 1X/DAY
     Route: 048
     Dates: start: 20130912, end: 20131007
  5. TRAMADOL [Concomitant]
     Dosage: UNK
     Route: 048
     Dates: start: 200511
  6. IBUPROFEN [Concomitant]
     Dosage: UNK
     Route: 048
     Dates: start: 200307
  7. IBERCAL [Concomitant]
     Dosage: UNK
     Route: 048
     Dates: start: 200612
  8. DORMODOR [Concomitant]
     Dosage: UNK
     Route: 048
     Dates: start: 201307

REACTIONS (2)
  - Drug interaction [Recovering/Resolving]
  - Chest discomfort [Recovering/Resolving]
